FAERS Safety Report 5876218-8 (Version None)
Quarter: 2008Q3

REPORT INFORMATION
  Report Type: 
  Country: None (occurrence: None)
  Receive Date: 20080910
  Receipt Date: 20080902
  Transmission Date: 20090109
  Serious: Yes (Death)
  Sender: FDA-Public Use
  Company Number: HU-TYCO HEALTHCARE/MALLINCKRODT-T200801445

PATIENT

DRUGS (6)
  1. OPTIRAY 300 [Suspect]
     Indication: COMPUTERISED TOMOGRAM
     Dosage: 100 ML, SINGLE
     Route: 042
     Dates: start: 20080818, end: 20080818
  2. AMLODIPINE [Concomitant]
  3. METOPROLOL SUCCINATE [Concomitant]
  4. ENALAPRIL MALEATE [Concomitant]
  5. HYDROCHLOROTHIAZIDE [Concomitant]
  6. EXPERIMENTAL MEDICINE OR PLACEBO [Concomitant]

REACTIONS (4)
  - ASPHYXIA [None]
  - COUGH [None]
  - LARYNGEAL OEDEMA [None]
  - TONGUE OEDEMA [None]
